FAERS Safety Report 9470846 (Version 1)
Quarter: 2013Q3

REPORT INFORMATION
  Report Type: Spontaneous
  Country: US (occurrence: None)
  Receive Date: 20130820
  Receipt Date: 20130820
  Transmission Date: 20140515
  Serious: Yes (Hospitalization)
  Sender: FDA-Public Use
  Company Number: None

PATIENT
  Age: 47 Year
  Sex: Female
  Weight: 117.94 kg

DRUGS (10)
  1. ACETAMINOPHEN [Suspect]
     Indication: BACK PAIN
     Route: 048
     Dates: start: 201306, end: 20130802
  2. ACETAMINOPHEN [Suspect]
     Route: 048
     Dates: start: 201306, end: 20130802
  3. LOSARTIN [Concomitant]
  4. VERAPAMIL [Concomitant]
  5. OXYCODONE [Concomitant]
  6. MS CONTIN [Concomitant]
  7. SOMA [Concomitant]
  8. OXYGEN [Concomitant]
  9. MULTI VITAMIN [Concomitant]
  10. IBUPROFEN [Concomitant]

REACTIONS (3)
  - Rash [None]
  - Blister [None]
  - Back pain [None]
